FAERS Safety Report 9021575 (Version 1)
Quarter: 2013Q1

REPORT INFORMATION
  Report Type: Spontaneous
  Country: US (occurrence: US)
  Receive Date: 20130119
  Receipt Date: 20130119
  Transmission Date: 20140127
  Serious: No
  Sender: FDA-Public Use
  Company Number: US-009507513-1301USA007057

PATIENT
  Age: 70 None
  Sex: Male

DRUGS (2)
  1. AZASITE [Suspect]
     Indication: EYE DISORDER
     Dosage: ONE DROP IN LEFT EYE, QD
     Route: 047
  2. FLOMAX (MORNIFLUMATE) [Concomitant]

REACTIONS (2)
  - Eye irritation [Not Recovered/Not Resolved]
  - Product quality issue [Unknown]
